FAERS Safety Report 6906141-9 (Version None)
Quarter: 2010Q3

REPORT INFORMATION
  Report Type: 
  Country: None (occurrence: None)
  Receive Date: 20100803
  Receipt Date: 20100803
  Transmission Date: 20110219
  Serious: Yes (Life-Threatening, Hospitalization)
  Sender: FDA-Public Use
  Company Number: None

PATIENT
  Sex: Male
  Weight: 12.6 kg

DRUGS (12)
  1. NUTROPIN AQ [Suspect]
     Indication: BODY HEIGHT BELOW NORMAL
     Dosage: 0.6 MG EACH EVENING SQ
     Route: 058
     Dates: start: 20080103, end: 20100518
  2. NUTROPIN AQ [Suspect]
     Indication: RENAL FAILURE CHRONIC
     Dosage: 0.6 MG EACH EVENING SQ
     Route: 058
     Dates: start: 20080103, end: 20100518
  3. ZANTAC [Concomitant]
  4. ROCALTROL [Concomitant]
  5. EPOGEN [Concomitant]
  6. SUPLENA [Concomitant]
  7. FERROUS SULFATE [Concomitant]
  8. NAC1 [Concomitant]
  9. POLYCITRA [Concomitant]
  10. NEPHRONEX [Concomitant]
  11. ALBUTEROL SULATE [Concomitant]
  12. QVAR 40 [Concomitant]

REACTIONS (4)
  - BLOOD CREATININE INCREASED [None]
  - HEPATOBLASTOMA [None]
  - RENAL TRANSPLANT [None]
  - URINE OUTPUT DECREASED [None]
